FAERS Safety Report 7091134-4 (Version None)
Quarter: 2010Q4

REPORT INFORMATION
  Report Type: 
  Country: None (occurrence: None)
  Receive Date: 20101105
  Receipt Date: 20101105
  Transmission Date: 20110411
  Serious: No
  Sender: FDA-Public Use
  Company Number: None

PATIENT

DRUGS (1)
  1. CEFOXITIN [Suspect]
     Dosage: 1GM IV DRIP
     Route: 041

REACTIONS (1)
  - PRODUCT CONTAMINATION PHYSICAL [None]
